FAERS Safety Report 17353899 (Version 1)
Quarter: 2020Q1

REPORT INFORMATION
  Report Type: Spontaneous
  Country: US (occurrence: US)
  Receive Date: 20200114
  Receipt Date: 20200114
  Transmission Date: 20200409
  Serious: Yes (Other)
  Sender: FDA-Public Use
  Company Number: None

PATIENT
  Age: 51 Year
  Sex: Female
  Weight: 63.5 kg

DRUGS (11)
  1. CLOPIDOGREL [Concomitant]
     Active Substance: CLOPIDOGREL BISULFATE
  2. PREDNISONE. [Concomitant]
     Active Substance: PREDNISONE
  3. CARVEDILOL. [Concomitant]
     Active Substance: CARVEDILOL
  4. ISOSORBIDE MONONITRATE. [Concomitant]
     Active Substance: ISOSORBIDE MONONITRATE
  5. REVELA [Concomitant]
  6. WARFARIN [Concomitant]
     Active Substance: WARFARIN
  7. PANTOPRAZOLE [Concomitant]
     Active Substance: PANTOPRAZOLE
  8. AZATHROPINE [Concomitant]
  9. BRILLENTA [Concomitant]
  10. RANOLAZINE 500MG [Suspect]
     Active Substance: RANOLAZINE
     Indication: CHEST PAIN
     Dosage: ?          QUANTITY:500 MG MILLIGRAM(S);?
     Route: 048
     Dates: start: 20190915, end: 20191031
  11. ATORVASTATIN [Concomitant]
     Active Substance: ATORVASTATIN

REACTIONS (3)
  - Tongue biting [None]
  - Bruxism [None]
  - Hypophagia [None]

NARRATIVE: CASE EVENT DATE: 20191015
